FAERS Safety Report 4713005-8 (Version None)
Quarter: 2005Q3

REPORT INFORMATION
  Report Type: 
  Country: None (occurrence: None)
  Receive Date: 20050711
  Receipt Date: 20050629
  Transmission Date: 20060218
  Serious: Yes (Disabling)
  Sender: FDA-Public Use
  Company Number: HQWYE362810JUN05

PATIENT
  Age: 57 Year
  Sex: Female

DRUGS (9)
  1. CORDARONE [Suspect]
     Indication: ATRIAL FLUTTER
     Dosage: SEE IMAGE
     Route: 048
     Dates: start: 20050125, end: 20050201
  2. CORDARONE [Suspect]
     Indication: ATRIAL TACHYCARDIA
     Dosage: SEE IMAGE
     Route: 048
     Dates: start: 20050125, end: 20050201
  3. CORDARONE [Suspect]
     Indication: ATRIAL FLUTTER
     Dosage: SEE IMAGE
     Route: 048
     Dates: start: 20050201, end: 20050201
  4. CORDARONE [Suspect]
     Indication: ATRIAL TACHYCARDIA
     Dosage: SEE IMAGE
     Route: 048
     Dates: start: 20050201, end: 20050201
  5. CORDARONE [Suspect]
     Indication: ATRIAL FLUTTER
     Dosage: SEE IMAGE
     Route: 048
     Dates: start: 20050201, end: 20050222
  6. CORDARONE [Suspect]
     Indication: ATRIAL TACHYCARDIA
     Dosage: SEE IMAGE
     Route: 048
     Dates: start: 20050201, end: 20050222
  7. ISOPTIN [Concomitant]
  8. VERAPAMIL [Concomitant]
  9. MARCUMAR [Concomitant]

REACTIONS (8)
  - ARRHYTHMIA [None]
  - CORNEAL DEPOSITS [None]
  - DYSPEPSIA [None]
  - OPTIC ATROPHY [None]
  - OPTIC NEUROPATHY [None]
  - RETINAL HAEMORRHAGE [None]
  - RETINAL OEDEMA [None]
  - VISUAL FIELD DEFECT [None]
